FAERS Safety Report 22151252 (Version 1)
Quarter: 2023Q1

REPORT INFORMATION
  Report Type: Spontaneous
  Country: US (occurrence: None)
  Receive Date: 20230328
  Receipt Date: 20230328
  Transmission Date: 20230417
  Serious: Yes (Disabling, Other)
  Sender: FDA-Public Use
  Company Number: None

PATIENT
  Age: 60 Year
  Sex: Male
  Weight: 117 kg

DRUGS (5)
  1. CLOPIDOGREL [Suspect]
     Active Substance: CLOPIDOGREL BISULFATE
     Dosage: 30 TABLETS ORAL
     Route: 048
     Dates: start: 20221118, end: 20230325
  2. LISINOPRIL [Concomitant]
     Active Substance: LISINOPRIL
  3. GLIPIZIDE [Concomitant]
     Active Substance: GLIPIZIDE
  4. ATORVASTATIN [Concomitant]
     Active Substance: ATORVASTATIN
  5. MOTRIN [Concomitant]
     Active Substance: IBUPROFEN

REACTIONS (13)
  - General physical health deterioration [None]
  - Therapy cessation [None]
  - Thyroid cyst [None]
  - Pyrexia [None]
  - Nausea [None]
  - Heart rate increased [None]
  - Heavy menstrual bleeding [None]
  - Cough [None]
  - Dizziness [None]
  - Dysmenorrhoea [None]
  - Abnormal faeces [None]
  - Excessive cerumen production [None]
  - Pruritus [None]

NARRATIVE: CASE EVENT DATE: 20230328
